FAERS Safety Report 16741679 (Version 1)
Quarter: 2019Q4

REPORT INFORMATION
  Report Type: Spontaneous
  Country: US (occurrence: US)
  Receive Date: 20190826
  Receipt Date: 20190826
  Transmission Date: 20200122
  Serious: Yes (Death)
  Sender: FDA-Public Use
  Company Number: None

PATIENT
  Sex: Male

DRUGS (7)
  1. DEXILANT [Concomitant]
     Active Substance: DEXLANSOPRAZOLE
  2. SIMVASTATIN. [Concomitant]
     Active Substance: SIMVASTATIN
  3. GABAPENTIN. [Concomitant]
     Active Substance: GABAPENTIN
  4. FINASTERIDE. [Concomitant]
     Active Substance: FINASTERIDE
  5. LEVOTHYROXINE. [Concomitant]
     Active Substance: LEVOTHYROXINE
  6. TAMSULOSIN [Concomitant]
     Active Substance: TAMSULOSIN
  7. CAPECITABINE. [Suspect]
     Active Substance: CAPECITABINE
     Indication: GASTRIC CANCER
     Route: 048
     Dates: start: 20190716

REACTIONS (1)
  - Death [None]
